FAERS Safety Report 6043590-8 (Version None)
Quarter: 2009Q1

REPORT INFORMATION
  Report Type: 
  Country: None (occurrence: None)
  Receive Date: 20090115
  Receipt Date: 20090105
  Transmission Date: 20090719
  Serious: Yes (Hospitalization)
  Sender: FDA-Public Use
  Company Number: 2008JP005795

PATIENT
  Age: 26 Year
  Sex: Female

DRUGS (2)
  1. PROGRAF [Suspect]
     Indication: RHEUMATOID ARTHRITIS
     Dosage: 34 MG, UNKNOWN/D, ORAL
     Route: 048
  2. PREDNISOLONE (PREDNISOLONES) [Concomitant]

REACTIONS (1)
  - MOYAMOYA DISEASE [None]
